FAERS Safety Report 19751613 (Version 1)
Quarter: 2021Q3

REPORT INFORMATION
  Report Type: Other
  Country: GB (occurrence: GB)
  Receive Date: 20210827
  Receipt Date: 20210827
  Transmission Date: 20211014
  Serious: Yes (Other)
  Sender: FDA-Public Use
  Company Number: GB-CELLTRION INC.-2019GB023721

PATIENT

DRUGS (30)
  1. REMSIMA [Suspect]
     Active Substance: INFLIXIMAB
     Dosage: 400 MG
     Route: 065
  2. REMSIMA [Suspect]
     Active Substance: INFLIXIMAB
     Dosage: 430 MG
  3. REMSIMA [Suspect]
     Active Substance: INFLIXIMAB
     Dosage: UNK
     Route: 065
  4. SODIUM CHLORIDE 0.9% [Suspect]
     Active Substance: SODIUM CHLORIDE
     Dosage: UNK
     Route: 065
  5. REMSIMA [Suspect]
     Active Substance: INFLIXIMAB
     Dosage: 400 MG
     Route: 065
  6. REMSIMA [Suspect]
     Active Substance: INFLIXIMAB
     Dosage: 400 MG
     Route: 065
  7. REMSIMA [Suspect]
     Active Substance: INFLIXIMAB
     Dosage: 428.5 MG
     Route: 065
  8. REMSIMA [Suspect]
     Active Substance: INFLIXIMAB
     Dosage: 428.5 MG
     Route: 065
  9. SODIUM CHLORIDE 0.9% [Suspect]
     Active Substance: SODIUM CHLORIDE
     Indication: MEDICATION DILUTION
     Dosage: UNK
     Route: 065
  10. SODIUM CHLORIDE 0.9% [Suspect]
     Active Substance: SODIUM CHLORIDE
     Dosage: UNK (DOSE FORM: 230)
     Route: 065
  11. WATER FOR INJECTIONS [Suspect]
     Active Substance: WATER
     Dosage: UNK
     Route: 065
  12. REMSIMA [Suspect]
     Active Substance: INFLIXIMAB
     Dosage: UNK
     Route: 065
  13. SODIUM CHLORIDE 0.9% [Suspect]
     Active Substance: SODIUM CHLORIDE
     Dosage: UNK
     Route: 065
  14. WATER FOR INJECTIONS [Suspect]
     Active Substance: WATER
     Dosage: UNK (DOSE FORM: 236)
     Route: 065
  15. REMSIMA [Suspect]
     Active Substance: INFLIXIMAB
     Dosage: 400 MG
     Route: 065
  16. SODIUM CHLORIDE 0.9% [Suspect]
     Active Substance: SODIUM CHLORIDE
     Dosage: UNK
     Route: 065
  17. WATER FOR INJECTIONS [Suspect]
     Active Substance: WATER
     Dosage: UNK
     Route: 065
  18. WATER FOR INJECTIONS [Suspect]
     Active Substance: WATER
     Dosage: UNK
     Route: 065
  19. WATER FOR INJECTIONS [Suspect]
     Active Substance: WATER
     Dosage: UNK
     Route: 065
  20. WATER FOR INJECTIONS [Suspect]
     Active Substance: WATER
     Dosage: UNK (DOSE FORM: 236)
     Route: 065
  21. REMSIMA [Suspect]
     Active Substance: INFLIXIMAB
     Indication: PRODUCT USED FOR UNKNOWN INDICATION
     Dosage: 400 MG
     Route: 065
  22. SODIUM CHLORIDE 0.9% [Suspect]
     Active Substance: SODIUM CHLORIDE
     Dosage: UNK
     Route: 065
  23. SODIUM CHLORIDE 0.9% [Suspect]
     Active Substance: SODIUM CHLORIDE
     Dosage: UNK
     Route: 065
  24. SODIUM CHLORIDE 0.9% [Suspect]
     Active Substance: SODIUM CHLORIDE
     Dosage: UNK (DOSE FORM: 230)
     Route: 065
  25. WATER FOR INJECTIONS [Suspect]
     Active Substance: WATER
     Dosage: UNK
     Route: 065
  26. REMSIMA [Suspect]
     Active Substance: INFLIXIMAB
     Dosage: 400 MG
     Route: 065
  27. SODIUM CHLORIDE 0.9% [Suspect]
     Active Substance: SODIUM CHLORIDE
     Dosage: UNK
     Route: 065
  28. WATER FOR INJECTIONS [Suspect]
     Active Substance: WATER
     Indication: MEDICATION DILUTION
     Dosage: UNK
     Route: 065
  29. SODIUM CHLORIDE 0.9% [Suspect]
     Active Substance: SODIUM CHLORIDE
     Dosage: UNK
     Route: 065
  30. WATER FOR INJECTIONS [Suspect]
     Active Substance: WATER
     Dosage: UNK
     Route: 065

REACTIONS (7)
  - COVID-19 [Unknown]
  - Arthralgia [Unknown]
  - Pain in extremity [Unknown]
  - Diarrhoea [Unknown]
  - Abdominal pain [Unknown]
  - Weight increased [Unknown]
  - Malaise [Unknown]
